FAERS Safety Report 8920180 (Version 2)
Quarter: 2012Q4

REPORT INFORMATION
  Report Type: Report from Study
  Country: NO (occurrence: NO)
  Receive Date: 20121122
  Receipt Date: 20121213
  Transmission Date: 20130627
  Serious: Yes (Death)
  Sender: FDA-Public Use
  Company Number: NO-ROCHE-1156023

PATIENT
  Sex: Male
  Weight: 84 kg

DRUGS (12)
  1. RANIBIZUMAB [Suspect]
     Indication: DIABETES MELLITUS
     Route: 050
     Dates: start: 20110612, end: 20110612
  2. RANIBIZUMAB [Suspect]
     Route: 050
     Dates: start: 20120708, end: 20120708
  3. RANIBIZUMAB [Suspect]
     Route: 050
     Dates: start: 20111206, end: 20111206
  4. RANIBIZUMAB [Suspect]
     Route: 050
     Dates: start: 20120110, end: 20120110
  5. RANIBIZUMAB [Suspect]
     Route: 050
     Dates: start: 20120207, end: 20120207
  6. RANIBIZUMAB [Suspect]
     Route: 050
     Dates: start: 20120320, end: 20120320
  7. RANIBIZUMAB [Suspect]
     Route: 050
     Dates: start: 20120518, end: 20120518
  8. RANIBIZUMAB [Suspect]
     Route: 050
     Dates: start: 20120807, end: 20120807
  9. METFORMIN HYDROCHLORIDE [Concomitant]
  10. AMARYL [Concomitant]
  11. COSAAR [Concomitant]
  12. SIMVASTATIN [Concomitant]

REACTIONS (1)
  - Sudden death [Fatal]
